FAERS Safety Report 5522156-X (Version None)
Quarter: 2007Q4

REPORT INFORMATION
  Report Type: 
  Country: None (occurrence: None)
  Receive Date: 20071120
  Receipt Date: 20071114
  Transmission Date: 20080405
  Serious: Yes (Hospitalization)
  Sender: FDA-Public Use
  Company Number: JP-ELI_LILLY_AND_COMPANY-JP200711003346

PATIENT
  Sex: Male
  Weight: 69.3 kg

DRUGS (9)
  1. PEMETREXED [Suspect]
     Indication: PLEURAL MESOTHELIOMA MALIGNANT
     Dosage: 500 MG/M2, OTHER
     Route: 042
     Dates: start: 20070223, end: 20070507
  2. *CISPLATIN [Suspect]
     Indication: PLEURAL MESOTHELIOMA MALIGNANT
     Dosage: 80 MG/M2, OTHER
     Route: 042
     Dates: start: 20070223, end: 20070507
  3. PANVITAN [Concomitant]
     Dosage: 0.5 MG, DAILY (1/D)
     Route: 048
     Dates: start: 20070212, end: 20070607
  4. CYANOCOBALAMIN [Concomitant]
     Dosage: 1 MG, UNK
     Route: 030
     Dates: start: 20070212, end: 20070212
  5. GLYSENNID [Concomitant]
     Indication: PROPHYLAXIS
     Dosage: 24 MG, DAILY (1/D)
     Route: 048
  6. MAGMITT [Concomitant]
     Indication: PROPHYLAXIS
     Dosage: 2 G, DAILY (1/D)
     Route: 048
  7. TAKEPRON [Concomitant]
     Indication: PROPHYLAXIS
     Dosage: 30 MG, DAILY (1/D)
     Route: 048
  8. LOXONIN [Concomitant]
     Indication: CANCER PAIN
     Dosage: 120 MG, DAILY (1/D)
     Route: 048
     Dates: start: 20070405
  9. MYSLEE [Concomitant]
     Indication: PROPHYLAXIS
     Dosage: 10 MG, DAILY (1/D)
     Route: 048
     Dates: start: 20070413

REACTIONS (1)
  - HERPES ZOSTER [None]
